FAERS Safety Report 8620136-9 (Version None)
Quarter: 2012Q3

REPORT INFORMATION
  Report Type: 
  Country: None (occurrence: None)
  Receive Date: 20120824
  Receipt Date: 20120817
  Transmission Date: 20120928
  Serious: Yes (Other)
  Sender: FDA-Public Use
  Company Number: US-JNJFOC-20120809518

PATIENT
  Age: 82 Year
  Sex: Male

DRUGS (10)
  1. VITAMIN/MINERALS [Concomitant]
  2. LUTEIN [Concomitant]
  3. LIPITOR [Concomitant]
  4. SOTALOL HCL [Concomitant]
  5. PROSTATIN [Concomitant]
  6. LOVAZA [Concomitant]
  7. BETAPACE [Concomitant]
  8. VITAMIN B-12 [Concomitant]
  9. PROSCAR [Concomitant]
  10. XARELTO [Suspect]
     Indication: PRODUCT USED FOR UNKNOWN INDICATION
     Route: 048
     Dates: start: 20120130

REACTIONS (3)
  - DRUG DOSE OMISSION [None]
  - CEREBROVASCULAR ACCIDENT [None]
  - RASH GENERALISED [None]
